FAERS Safety Report 5515635-2 (Version None)
Quarter: 2007Q4

REPORT INFORMATION
  Report Type: 
  Country: None (occurrence: None)
  Receive Date: 20071113
  Receipt Date: 20070717
  Transmission Date: 20080405
  Serious: No
  Sender: FDA-Public Use
  Company Number: A0664569A

PATIENT
  Age: 79 Year
  Sex: Male

DRUGS (18)
  1. COREG [Suspect]
     Indication: HYPERTENSION
     Dosage: 6.25MG TWICE PER DAY
     Route: 048
     Dates: start: 20060601
  2. ALTACE [Concomitant]
  3. FUROSEMIDE [Concomitant]
  4. UNKNOWN MEDICATION [Concomitant]
  5. KLOR-CON [Concomitant]
  6. LIPITOR [Concomitant]
  7. PRILOSEC [Concomitant]
  8. UNKNOWN MEDICATION [Concomitant]
  9. ASPIRIN [Concomitant]
  10. VIT A [Concomitant]
  11. BETA CAROTENE [Concomitant]
  12. VIT C [Concomitant]
  13. VIT E [Concomitant]
  14. ZINC [Concomitant]
  15. COPPER [Concomitant]
  16. LUTEIN [Concomitant]
  17. FISH OIL [Concomitant]
  18. VITAMIN [Concomitant]

REACTIONS (1)
  - BLOOD PRESSURE INCREASED [None]
